FAERS Safety Report 7238888-1 (Version None)
Quarter: 2011Q1

REPORT INFORMATION
  Report Type: 
  Country: None (occurrence: None)
  Receive Date: 20110121
  Receipt Date: 20110118
  Transmission Date: 20110831
  Serious: Yes (Hospitalization)
  Sender: FDA-Public Use
  Company Number: CA-AMGEN-CANCT2010002056

PATIENT

DRUGS (14)
  1. ACTONEL [Concomitant]
  2. PREDNISONE [Concomitant]
     Dosage: 5 MG, UNK
     Route: 048
  3. DOMPERIDONE [Concomitant]
  4. FOLIC ACID [Concomitant]
  5. SYNTHROID [Concomitant]
  6. CALCITE                            /00108001/ [Concomitant]
  7. METHOTREXATE [Suspect]
     Dosage: 12.5 MG, Q2WK
     Route: 048
     Dates: start: 20100126, end: 20101004
  8. PANTOPRAZOL                        /01263202/ [Concomitant]
  9. DOXAZOSIN MESYLATE [Concomitant]
  10. ASAPHEN [Concomitant]
  11. LEVETIRACETAM [Concomitant]
  12. ATENOLOL [Concomitant]
  13. PRAMIPEXOLE [Concomitant]
  14. ETANERCEPT [Suspect]
     Indication: RHEUMATOID ARTHRITIS
     Dosage: 50 MG, QWK
     Route: 058
     Dates: start: 20100712, end: 20100906

REACTIONS (1)
  - PNEUMONITIS [None]
